FAERS Safety Report 18072378 (Version 1)
Quarter: 2020Q3

REPORT INFORMATION
  Report Type: Spontaneous
  Country: ES (occurrence: ES)
  Receive Date: 20200726
  Receipt Date: 20200726
  Transmission Date: 20201103
  Serious: No
  Sender: FDA-Public Use
  Company Number: None

PATIENT
  Age: 40 Year
  Sex: Female
  Weight: 61 kg

DRUGS (1)
  1. ATORVASTATINA [Suspect]
     Active Substance: ATORVASTATIN

REACTIONS (3)
  - Abdominal pain upper [None]
  - Vomiting [None]
  - Neck pain [None]

NARRATIVE: CASE EVENT DATE: 20200719
